FAERS Safety Report 14098910 (Version 2)
Quarter: 2018Q1

REPORT INFORMATION
  Report Type: Spontaneous
  Country: JP (occurrence: JP)
  Receive Date: 20171017
  Receipt Date: 20180202
  Transmission Date: 20180508
  Serious: Yes (Hospitalization, Other)
  Sender: FDA-Public Use
  Company Number: JP-GLAXOSMITHKLINE-JP2017JPN095418

PATIENT
  Age: 80 Year
  Sex: Male

DRUGS (9)
  1. URSO [Concomitant]
     Active Substance: URSODIOL
     Dosage: UNK
  2. TIAPRIDE [Concomitant]
     Active Substance: TIAPRIDE
     Dosage: UNK
  3. TAMSULOSIN HYDROCHLORIDE. [Concomitant]
     Active Substance: TAMSULOSIN HYDROCHLORIDE
     Dosage: UNK
  4. TETRAMIDE [Concomitant]
     Active Substance: MIANSERIN
     Dosage: UNK
  5. PRAVASTATIN SODIUM. [Concomitant]
     Active Substance: PRAVASTATIN SODIUM
     Dosage: UNK
  6. AVOLVE [Suspect]
     Active Substance: DUTASTERIDE
     Dosage: 0.5 MG, QD
     Route: 048
  7. MAGNESIUM OXIDE. [Concomitant]
     Active Substance: MAGNESIUM OXIDE
     Dosage: UNK
  8. CALONAL [Concomitant]
     Active Substance: ACETAMINOPHEN
     Dosage: UNK
  9. BELSOMRA [Concomitant]
     Active Substance: SUVOREXANT
     Dosage: UNK

REACTIONS (3)
  - Dysphagia [Recovered/Resolved]
  - Fall [Unknown]
  - Femur fracture [Unknown]

NARRATIVE: CASE EVENT DATE: 20170620
